FAERS Safety Report 7610581-2 (Version None)
Quarter: 2011Q3

REPORT INFORMATION
  Report Type: 
  Country: None (occurrence: None)
  Receive Date: 20110707
  Receipt Date: 20110628
  Transmission Date: 20111222
  Serious: Yes (Disabling, Other)
  Sender: FDA-Public Use
  Company Number: ACO_25467_2011

PATIENT
  Age: 77 Year
  Sex: Female

DRUGS (1)
  1. AMPYRA [Suspect]
     Indication: GAIT DISTURBANCE
     Dosage: 10 MG, BID
     Dates: start: 20110405, end: 20110620

REACTIONS (6)
  - DYSSTASIA [None]
  - DEPRESSION [None]
  - CONSTIPATION [None]
  - FATIGUE [None]
  - DIZZINESS [None]
  - PAIN [None]
